FAERS Safety Report 4269855-8 (Version None)
Quarter: 2004Q1

REPORT INFORMATION
  Report Type: 
  Country: None (occurrence: None)
  Receive Date: 20040112
  Receipt Date: 20040112
  Transmission Date: 20041129
  Serious: Yes (Hospitalization)
  Sender: FDA-Public Use
  Company Number: None

PATIENT
  Age: 67 Year
  Sex: Male

DRUGS (14)
  1. ASPIRIN [Suspect]
     Indication: CORONARY ARTERY DISEASE
     Dosage: 325 MG QD
     Dates: start: 19950401
  2. CLOPIDOGREL BISULFATE [Suspect]
     Indication: CORONARY ARTERY DISEASE
     Dosage: 75 MG QD
     Dates: start: 20031003
  3. RESERPINE [Concomitant]
  4. MESALAMINE [Concomitant]
  5. FUROSEMIDE [Concomitant]
  6. FLOMAX [Concomitant]
  7. GUAIFENESIN [Concomitant]
  8. SOTALOL HCL [Concomitant]
  9. LISINOPRIL [Concomitant]
  10. SPIRONOLACTE [Concomitant]
  11. DIAZEPAM [Concomitant]
  12. CLONIDINE [Concomitant]
  13. PREDNISONE [Concomitant]
  14. NPH INSULIN [Concomitant]

REACTIONS (1)
  - GASTROINTESTINAL HAEMORRHAGE [None]
